FAERS Safety Report 17140204 (Version 1)
Quarter: 2019Q4

REPORT INFORMATION
  Report Type: Spontaneous
  Country: DK (occurrence: DK)
  Receive Date: 20191211
  Receipt Date: 20191211
  Transmission Date: 20200122
  Serious: Yes (Disabling)
  Sender: FDA-Public Use
  Company Number: NVSC2019DK059059

PATIENT
  Age: 63 Year
  Sex: Female

DRUGS (4)
  1. METHOTREXATE. [Suspect]
     Active Substance: METHOTREXATE
     Indication: DERMATITIS
     Dosage: 10 MG, QW (STYRKE: 2,5 MG.)
     Route: 048
     Dates: start: 20190312, end: 201909
  2. FOLIMET [Concomitant]
     Active Substance: FOLIC ACID
     Indication: VITAMIN SUPPLEMENTATION
     Dosage: 5 MG, QD(STYRKE: 5 MG.)
     Route: 048
     Dates: start: 20190314
  3. FEXOFENADINE [Concomitant]
     Active Substance: FEXOFENADINE HYDROCHLORIDE
     Indication: URTICARIA
     Dosage: 720 MG, QD(STYRKE: 180 MG.)
     Route: 048
     Dates: start: 20190305
  4. NAPROXEN. [Concomitant]
     Active Substance: NAPROXEN
     Indication: PAIN
     Dosage: 500 MG(STYRKE: 500 MG.DOSIS: 1 TABLET MORGEN EFTER BEHOV.)
     Route: 048
     Dates: start: 20180815

REACTIONS (2)
  - Impaired work ability [Unknown]
  - Optic neuritis [Unknown]

NARRATIVE: CASE EVENT DATE: 2019
